FAERS Safety Report 9999756 (Version 1)
Quarter: 2014Q1

REPORT INFORMATION
  Report Type: Spontaneous
  Country: MX (occurrence: MX)
  Receive Date: 20140312
  Receipt Date: 20140312
  Transmission Date: 20141002
  Serious: Yes (Death)
  Sender: FDA-Public Use
  Company Number: MX-UCBSA-114377

PATIENT
  Sex: 0

DRUGS (1)
  1. NEUPRO (NUBRENZA) [Suspect]
     Dosage: UNKNOWN DOSE

REACTIONS (1)
  - Death [Fatal]
